FAERS Safety Report 24311015 (Version 3)
Quarter: 2024Q3

REPORT INFORMATION
  Report Type: Spontaneous
  Country: US (occurrence: US)
  Receive Date: 20240912
  Receipt Date: 20240927
  Transmission Date: 20241016
  Serious: Yes (Hospitalization, Other)
  Sender: MERCK
  Company Number: US-009507513-2409USA003587

PATIENT
  Sex: Male
  Weight: 85.3 kg

DRUGS (6)
  1. KEYTRUDA [Suspect]
     Active Substance: PEMBROLIZUMAB
     Indication: Lung cancer metastatic
     Dosage: 200 MILLIGRAM
     Route: 042
     Dates: start: 20240619, end: 202408
  2. ATORVASTATIN [Concomitant]
     Active Substance: ATORVASTATIN
     Dosage: 1 TABLET BY MOUTH EVERY EVENING
     Route: 048
  3. JARDIANCE [Concomitant]
     Active Substance: EMPAGLIFLOZIN
     Dosage: 1 TABLET BY MOUTH EVERY DAY
     Route: 048
  4. METOPROLOL SUCCINATE [Concomitant]
     Active Substance: METOPROLOL SUCCINATE
     Dosage: 0.5 TABLETS BY MOUTH 2 TIMES DAILY
     Route: 048
  5. BIFIDOBACTERIUM ANIMALIS LACTIS [Concomitant]
     Active Substance: BIFIDOBACTERIUM ANIMALIS LACTIS
     Dosage: 1 TABLET BY MOUTH EVERY OTHER DAY
     Route: 048
  6. ASPIRIN [Concomitant]
     Active Substance: ASPIRIN

REACTIONS (17)
  - Hypoxia [Unknown]
  - Lung consolidation [Unknown]
  - Pneumothorax [Not Recovered/Not Resolved]
  - Hydrothorax [Recovered/Resolved]
  - Sepsis [Not Recovered/Not Resolved]
  - Pulmonary oedema [Unknown]
  - Pneumomediastinum [Unknown]
  - Pleural effusion [Unknown]
  - Pulmonary embolism [Unknown]
  - Chronic kidney disease [Unknown]
  - Pneumonia [Not Recovered/Not Resolved]
  - Pneumonitis [Not Recovered/Not Resolved]
  - Acute kidney injury [Unknown]
  - Thrombocytopenia [Unknown]
  - Orthostatic hypotension [Unknown]
  - Atelectasis [Unknown]
  - Aortic dilatation [Unknown]

NARRATIVE: CASE EVENT DATE: 20240101
